FAERS Safety Report 20050489 (Version 5)
Quarter: 2024Q2

REPORT INFORMATION
  Report Type: Report from Study
  Country: CA (occurrence: CA)
  Receive Date: 20211109
  Receipt Date: 20240625
  Transmission Date: 20240715
  Serious: Yes (Other)
  Sender: FDA-Public Use
  Company Number: CA-ABBVIE-21K-028-4146564-00

PATIENT
  Sex: Female

DRUGS (1)
  1. SKYRIZI [Suspect]
     Active Substance: RISANKIZUMAB-RZAA
     Indication: Psoriasis
     Route: 058
     Dates: start: 20191204

REACTIONS (7)
  - Blindness unilateral [Unknown]
  - Blood pressure systolic increased [Unknown]
  - Sinusitis [Unknown]
  - COVID-19 [Unknown]
  - Glaucoma [Unknown]
  - Cataract [Unknown]
  - Asthenopia [Unknown]

NARRATIVE: CASE EVENT DATE: 20200101
